FAERS Safety Report 22195107 (Version 1)
Quarter: 2023Q2

REPORT INFORMATION
  Report Type: Report from Study
  Country: JP (occurrence: JP)
  Receive Date: 20230411
  Receipt Date: 20230411
  Transmission Date: 20230721
  Serious: Yes (Other)
  Sender: FDA-Public Use
  Company Number: JP-RECORDATI-2022002305

PATIENT

DRUGS (3)
  1. PASIREOTIDE [Suspect]
     Active Substance: PASIREOTIDE
     Indication: Pituitary-dependent Cushing^s syndrome
     Dosage: 10 MILLIGRAM, EVERY 4 WEEKS
     Route: 030
     Dates: start: 20190716, end: 20191106
  2. METOPIRON [METYRAPONE] [Concomitant]
     Indication: Pituitary-dependent Cushing^s syndrome
     Dosage: 1250 MILLIGRAM, QD
     Route: 048
  3. CORTRIL [Concomitant]
     Active Substance: HYDROCORTISONE
     Indication: Pituitary-dependent Cushing^s syndrome
     Dosage: 10 MILLIGRAM, QD
     Route: 048
     Dates: start: 20161028

REACTIONS (6)
  - Hypokalaemia [Unknown]
  - Condition aggravated [Unknown]
  - Diabetes mellitus [Recovering/Resolving]
  - Hypertension [Unknown]
  - Hyperglycaemia [Recovering/Resolving]
  - Drug ineffective [Recovered/Resolved]

NARRATIVE: CASE EVENT DATE: 20190716
